FAERS Safety Report 4314367-6 (Version None)
Quarter: 2004Q1

REPORT INFORMATION
  Report Type: 
  Country: None (occurrence: None)
  Receive Date: 20040308
  Receipt Date: 20040226
  Transmission Date: 20041129
  Serious: Yes (Other)
  Sender: FDA-Public Use
  Company Number: CIP04000402

PATIENT
  Age: 71 Year
  Sex: Female

DRUGS (2)
  1. ACTONEL [Suspect]
     Indication: OSTEOPOROSIS
     Dosage: 35 MG ONCE WEEKLY, ORAL
     Route: 048
  2. DYAZIDE [Concomitant]

REACTIONS (5)
  - AORTIC ANEURYSM [None]
  - BLOOD URINE [None]
  - BREAST CANCER [None]
  - STOMACH DISCOMFORT [None]
  - WHITE BLOOD CELLS URINE [None]
